FAERS Safety Report 6107166-6 (Version None)
Quarter: 2009Q1

REPORT INFORMATION
  Report Type: 
  Country: None (occurrence: None)
  Receive Date: 20090305
  Receipt Date: 20090305
  Transmission Date: 20090719
  Serious: Yes (Other)
  Sender: FDA-Public Use
  Company Number: None

PATIENT
  Age: 72 Year
  Sex: Female
  Weight: 63.5036 kg

DRUGS (3)
  1. RECLAST [Suspect]
     Indication: OSTEOPOROSIS
     Dosage: 5 MG ONCE A YEAR I.V.
     Route: 042
     Dates: start: 20090129
  2. VIT D [Concomitant]
  3. CALCIUM [Concomitant]

REACTIONS (7)
  - ARTHRALGIA [None]
  - DIZZINESS [None]
  - DRUG INEFFECTIVE [None]
  - HEADACHE [None]
  - MUSCLE SPASMS [None]
  - PAIN [None]
  - PYREXIA [None]
